FAERS Safety Report 8120347-5 (Version None)
Quarter: 2012Q1

REPORT INFORMATION
  Report Type: 
  Country: None (occurrence: None)
  Receive Date: 20120207
  Receipt Date: 20120201
  Transmission Date: 20120608
  Serious: Yes (Hospitalization)
  Sender: FDA-Public Use
  Company Number: US-GLAXOSMITHKLINE-A0964277A

PATIENT
  Age: 61 Year
  Sex: Male
  Weight: 85.8 kg

DRUGS (1)
  1. MELPHALAN HYDROCHLORIDE [Suspect]
     Indication: MULTIPLE MYELOMA
     Dosage: 100MGM2 UNKNOWN
     Route: 042
     Dates: start: 20111107, end: 20111108

REACTIONS (1)
  - PYREXIA [None]
